FAERS Safety Report 24922946 (Version 1)
Quarter: 2025Q1

REPORT INFORMATION
  Report Type: Report from Study
  Country: ES (occurrence: ES)
  Receive Date: 20250204
  Receipt Date: 20250204
  Transmission Date: 20250408
  Serious: Yes (Death)
  Sender: PFIZER
  Company Number: ES-ROCHE-2981486

PATIENT
  Age: 67 Year
  Sex: Male
  Weight: 89.8 kg

DRUGS (12)
  1. BEVACIZUMAB [Suspect]
     Active Substance: BEVACIZUMAB
     Indication: Non-small cell lung cancer metastatic
     Route: 065
     Dates: start: 20211109
  2. CARBOPLATIN [Suspect]
     Active Substance: CARBOPLATIN
     Indication: Non-small cell lung cancer metastatic
     Route: 065
     Dates: start: 20211130
  3. CARBOPLATIN [Suspect]
     Active Substance: CARBOPLATIN
     Dates: start: 20211109
  4. PACLITAXEL [Suspect]
     Active Substance: PACLITAXEL
     Indication: Non-small cell lung cancer metastatic
     Route: 065
     Dates: start: 20211109
  5. ATEZOLIZUMAB [Suspect]
     Active Substance: ATEZOLIZUMAB
     Indication: Non-small cell lung cancer metastatic
     Route: 042
     Dates: start: 20211109
  6. FLECAINIDE [Concomitant]
     Active Substance: FLECAINIDE
     Route: 065
     Dates: start: 20210217
  7. LANSOPRAZOLE [Concomitant]
     Active Substance: LANSOPRAZOLE
     Indication: Prophylaxis
     Dosage: UNK, 1X/DAY(MEDICATION ONGOING-YES )
     Route: 065
     Dates: start: 20171004
  8. TORSEMIDE [Concomitant]
     Active Substance: TORSEMIDE
     Dosage: UNK, 1X/DAY (MEDICATION ONGOING-YES )
     Route: 065
     Dates: start: 20150427
  9. ATORVASTATIN [Concomitant]
     Active Substance: ATORVASTATIN
     Dosage: UNK, 1X/DAY (MEDICATION ONGOING-YES )
     Route: 065
     Dates: start: 20171004
  10. VALSARTAN [Concomitant]
     Active Substance: VALSARTAN
     Dosage: UNK, 1X/DAY (MEDICATION ONGOING-YES )
     Route: 065
     Dates: start: 20111220
  11. BEMIPARIN [Concomitant]
     Active Substance: BEMIPARIN
     Dosage: UNK, 1X/DAY (MEDICATION ONGOING:YES)
     Route: 065
     Dates: start: 20210927
  12. APIXABAN [Concomitant]
     Active Substance: APIXABAN
     Route: 065
     Dates: start: 20210217

REACTIONS (2)
  - Death [Fatal]
  - Asthenia [Recovered/Resolved]

NARRATIVE: CASE EVENT DATE: 20211129
